FAERS Safety Report 17851255 (Version 1)
Quarter: 2020Q2

REPORT INFORMATION
  Report Type: Spontaneous
  Country: FR (occurrence: FR)
  Receive Date: 20200602
  Receipt Date: 20200602
  Transmission Date: 20200714
  Serious: Yes (Other)
  Sender: FDA-Public Use
  Company Number: FR-TEVA-2020-FR-1242281

PATIENT
  Age: 56 Year
  Sex: Female
  Weight: 44 kg

DRUGS (4)
  1. VENLAFAXINE (CHLORHYDRATE DE) [Suspect]
     Active Substance: VENLAFAXINE HYDROCHLORIDE
     Indication: DEPRESSION
     Dosage: 225 MG
     Route: 048
  2. PRAZEPAM [Suspect]
     Active Substance: PRAZEPAM
     Indication: ANXIETY
     Dosage: 10 MG
     Route: 048
  3. XEROQUEL LP 300 MG, COMPRIM? ? LIB?RATION PROLONG?E [Suspect]
     Active Substance: QUETIAPINE FUMARATE
     Indication: DEPRESSION
     Dosage: 1 DOSAGE FORMS
     Route: 048
     Dates: start: 20170411, end: 20170530
  4. XEROQUEL LP 300 MG, COMPRIM? ? LIB?RATION PROLONG?E [Suspect]
     Active Substance: QUETIAPINE FUMARATE
     Dosage: 3 DOSAGE FORMS
     Dates: start: 20170224, end: 20170224

REACTIONS (2)
  - Hepatic enzyme increased [Recovered/Resolved]
  - Hepatocellular injury [Recovered/Resolved]

NARRATIVE: CASE EVENT DATE: 20170524
